FAERS Safety Report 14262940 (Version 1)
Quarter: 2017Q4

REPORT INFORMATION
  Report Type: Spontaneous
  Country: US (occurrence: US)
  Receive Date: 20171208
  Receipt Date: 20171208
  Transmission Date: 20180321
  Serious: No
  Sender: FDA-Public Use
  Company Number: US-GLAXOSMITHKLINE-US2017186334

PATIENT
  Sex: Male

DRUGS (8)
  1. PROVENTIL [Concomitant]
     Active Substance: ALBUTEROL
  2. MELATONIN [Concomitant]
     Active Substance: MELATONIN
  3. CALCIUM SUPPLEMENT [Concomitant]
     Active Substance: CALCIUM
  4. LORAZEPAM. [Concomitant]
     Active Substance: LORAZEPAM
  5. BREO ELLIPTA [Suspect]
     Active Substance: FLUTICASONE FUROATE\VILANTEROL TRIFENATATE
     Indication: CHRONIC OBSTRUCTIVE PULMONARY DISEASE
     Dosage: 1 PUFF(S), 1D
     Route: 055
     Dates: start: 2017
  6. ASPIRIN (BABY) [Concomitant]
     Active Substance: ASPIRIN
  7. SPIRIVA [Concomitant]
     Active Substance: TIOTROPIUM BROMIDE MONOHYDRATE
  8. ATROVENT [Concomitant]
     Active Substance: IPRATROPIUM BROMIDE

REACTIONS (1)
  - Chronic obstructive pulmonary disease [Recovering/Resolving]

NARRATIVE: CASE EVENT DATE: 2017
